FAERS Safety Report 7216994-5 (Version None)
Quarter: 2011Q1

REPORT INFORMATION
  Report Type: 
  Country: None (occurrence: None)
  Receive Date: 20110110
  Receipt Date: 20100930
  Transmission Date: 20110831
  Serious: No
  Sender: FDA-Public Use
  Company Number: A0882650A

PATIENT
  Age: 87 Year
  Sex: Female

DRUGS (2)
  1. REQUIP XL [Suspect]
     Indication: PARKINSON'S DISEASE
     Dosage: 2MG SINGLE DOSE
     Route: 048
     Dates: start: 20100921, end: 20100921
  2. ARICEPT [Concomitant]

REACTIONS (4)
  - HYPERHIDROSIS [None]
  - DIZZINESS [None]
  - DYSSTASIA [None]
  - BALANCE DISORDER [None]
